FAERS Safety Report 12270581 (Version 1)
Quarter: 2016Q2

REPORT INFORMATION
  Report Type: Spontaneous
  Country: US (occurrence: None)
  Receive Date: 20160414
  Receipt Date: 20160414
  Transmission Date: 20160815
  Serious: Yes (Death)
  Sender: FDA-Public Use
  Company Number: None

PATIENT
  Age: 93 Year
  Sex: Male
  Weight: 82.9 kg

DRUGS (1)
  1. WARFARIN, 2.5MG [Suspect]
     Active Substance: WARFARIN
     Indication: ATRIAL FIBRILLATION
     Route: 048

REACTIONS (7)
  - Anuria [None]
  - Septic shock [None]
  - Lower gastrointestinal haemorrhage [None]
  - Metabolic acidosis [None]
  - Splenic haemorrhage [None]
  - Cardiac arrest [None]
  - Lactic acidosis [None]

NARRATIVE: CASE EVENT DATE: 20151212
